FAERS Safety Report 4409939-4 (Version None)
Quarter: 2004Q3

REPORT INFORMATION
  Report Type: 
  Country: None (occurrence: None)
  Receive Date: 20040728
  Receipt Date: 20040607
  Transmission Date: 20050211
  Serious: Yes (Other)
  Sender: FDA-Public Use
  Company Number: DE-GLAXOSMITHKLINE-D0043950A

PATIENT
  Age: 21 Year
  Sex: Male

DRUGS (3)
  1. ZYBAN [Suspect]
     Route: 048
  2. HALDOL [Concomitant]
     Route: 065
  3. ATOSIL [Concomitant]
     Route: 065

REACTIONS (3)
  - AGGRESSION [None]
  - HYPOAESTHESIA ORAL [None]
  - MUSCLE CRAMP [None]
